FAERS Safety Report 25792407 (Version 1)
Quarter: 2025Q3

REPORT INFORMATION
  Report Type: Spontaneous
  Country: EU (occurrence: EU)
  Receive Date: 20250911
  Receipt Date: 20250911
  Transmission Date: 20251020
  Serious: Yes (Death, Hospitalization)
  Sender: MYLAN
  Company Number: EU-MYLANLABS-2025M1076383

PATIENT
  Age: 15 Year
  Sex: Female

DRUGS (32)
  1. TACROLIMUS [Suspect]
     Active Substance: TACROLIMUS
     Indication: Myocarditis
  2. TACROLIMUS [Suspect]
     Active Substance: TACROLIMUS
     Route: 065
  3. TACROLIMUS [Suspect]
     Active Substance: TACROLIMUS
     Route: 065
  4. TACROLIMUS [Suspect]
     Active Substance: TACROLIMUS
  5. IMMUNE GLOBULIN NOS [Suspect]
     Active Substance: IMMUNE GLOBULIN NOS
     Indication: Myocarditis
  6. IMMUNE GLOBULIN NOS [Suspect]
     Active Substance: IMMUNE GLOBULIN NOS
     Route: 065
  7. IMMUNE GLOBULIN NOS [Suspect]
     Active Substance: IMMUNE GLOBULIN NOS
     Route: 065
  8. IMMUNE GLOBULIN NOS [Suspect]
     Active Substance: IMMUNE GLOBULIN NOS
  9. LAMOTRIGINE [Concomitant]
     Active Substance: LAMOTRIGINE
     Indication: Progressive myoclonic epilepsy
     Dosage: 400 MILLIGRAM, QD
  10. LAMOTRIGINE [Concomitant]
     Active Substance: LAMOTRIGINE
     Dosage: 400 MILLIGRAM, QD
     Route: 065
  11. LAMOTRIGINE [Concomitant]
     Active Substance: LAMOTRIGINE
     Dosage: 400 MILLIGRAM, QD
     Route: 065
  12. LAMOTRIGINE [Concomitant]
     Active Substance: LAMOTRIGINE
     Dosage: 400 MILLIGRAM, QD
  13. CLOBAZAM [Concomitant]
     Active Substance: CLOBAZAM
     Indication: Progressive myoclonic epilepsy
     Dosage: 40 MILLIGRAM, QD
  14. CLOBAZAM [Concomitant]
     Active Substance: CLOBAZAM
     Dosage: 40 MILLIGRAM, QD
     Route: 065
  15. CLOBAZAM [Concomitant]
     Active Substance: CLOBAZAM
     Dosage: 40 MILLIGRAM, QD
     Route: 065
  16. CLOBAZAM [Concomitant]
     Active Substance: CLOBAZAM
     Dosage: 40 MILLIGRAM, QD
  17. PERAMPANEL [Concomitant]
     Active Substance: PERAMPANEL
     Indication: Progressive myoclonic epilepsy
     Dosage: 6 MILLIGRAM, QD
  18. PERAMPANEL [Concomitant]
     Active Substance: PERAMPANEL
     Dosage: 6 MILLIGRAM, QD
     Route: 065
  19. PERAMPANEL [Concomitant]
     Active Substance: PERAMPANEL
     Dosage: 6 MILLIGRAM, QD
     Route: 065
  20. PERAMPANEL [Concomitant]
     Active Substance: PERAMPANEL
     Dosage: 6 MILLIGRAM, QD
  21. PREDNISOLONE [Concomitant]
     Active Substance: PREDNISOLONE
     Indication: Immunosuppressant drug therapy
  22. PREDNISOLONE [Concomitant]
     Active Substance: PREDNISOLONE
     Indication: Prophylaxis
     Route: 065
  23. PREDNISOLONE [Concomitant]
     Active Substance: PREDNISOLONE
     Route: 065
  24. PREDNISOLONE [Concomitant]
     Active Substance: PREDNISOLONE
  25. SIROLIMUS [Concomitant]
     Active Substance: SIROLIMUS
     Indication: Immunosuppressant drug therapy
  26. SIROLIMUS [Concomitant]
     Active Substance: SIROLIMUS
     Indication: Prophylaxis
     Route: 065
  27. SIROLIMUS [Concomitant]
     Active Substance: SIROLIMUS
     Route: 065
  28. SIROLIMUS [Concomitant]
     Active Substance: SIROLIMUS
  29. ECULIZUMAB [Concomitant]
     Active Substance: ECULIZUMAB
     Indication: Platelet count decreased
  30. ECULIZUMAB [Concomitant]
     Active Substance: ECULIZUMAB
     Route: 065
  31. ECULIZUMAB [Concomitant]
     Active Substance: ECULIZUMAB
     Route: 065
  32. ECULIZUMAB [Concomitant]
     Active Substance: ECULIZUMAB

REACTIONS (2)
  - Drug ineffective for unapproved indication [Fatal]
  - Off label use [Unknown]
